FAERS Safety Report 5557228-7 (Version None)
Quarter: 2007Q4

REPORT INFORMATION
  Report Type: 
  Country: None (occurrence: None)
  Receive Date: 20071214
  Receipt Date: 20071207
  Transmission Date: 20080405
  Serious: Yes (Other)
  Sender: FDA-Public Use
  Company Number: JP-AVENTIS-200713339JP

PATIENT
  Age: 70 Year
  Sex: Male

DRUGS (3)
  1. AMARYL [Suspect]
     Route: 048
     Dates: start: 20060601
  2. DIOVAN [Concomitant]
     Indication: HYPERTENSION
  3. NORVASC                            /00972401/ [Concomitant]
     Indication: HYPERTENSION

REACTIONS (1)
  - BLOOD POTASSIUM INCREASED [None]
